FAERS Safety Report 8107716-4 (Version None)
Quarter: 2012Q1

REPORT INFORMATION
  Report Type: 
  Country: None (occurrence: None)
  Receive Date: 20120202
  Receipt Date: 20120125
  Transmission Date: 20120608
  Serious: Yes (Hospitalization)
  Sender: FDA-Public Use
  Company Number: US-JNJFOC-20120112228

PATIENT
  Sex: Male

DRUGS (1)
  1. MYLANTA [Suspect]
     Indication: DYSPEPSIA
     Route: 048
     Dates: start: 20120124

REACTIONS (3)
  - MEDICAL OBSERVATION [None]
  - DRUG INEFFECTIVE [None]
  - EXPIRED DRUG ADMINISTERED [None]
